FAERS Safety Report 15477265 (Version 3)
Quarter: 2018Q4

REPORT INFORMATION
  Report Type: Spontaneous
  Country: US (occurrence: US)
  Receive Date: 20181009
  Receipt Date: 20181102
  Transmission Date: 20190205
  Serious: No
  Sender: FDA-Public Use
  Company Number: US-PFIZER INC-2018399436

PATIENT
  Age: 29 Year
  Sex: Male

DRUGS (5)
  1. PRISTIQ EXTENDED-RELEASE [Suspect]
     Active Substance: DESVENLAFAXINE SUCCINATE
     Indication: DEPRESSION
     Dosage: 50 MG, 1X/DAY (AM)
     Route: 048
     Dates: start: 20180606, end: 20181001
  2. PRISTIQ EXTENDED-RELEASE [Suspect]
     Active Substance: DESVENLAFAXINE SUCCINATE
     Indication: MAJOR DEPRESSION
  3. PRISTIQ EXTENDED-RELEASE [Suspect]
     Active Substance: DESVENLAFAXINE SUCCINATE
     Indication: SOCIAL ANXIETY DISORDER
     Dosage: 100 MG, 1X/DAY (AM)
     Route: 048
     Dates: start: 20181002
  4. WELLBUTRIN SR [Concomitant]
     Active Substance: BUPROPION HYDROCHLORIDE
     Indication: MAJOR DEPRESSION
     Dosage: 150 MG, 2X/DAY
     Dates: start: 20180316
  5. BUSPAR [Concomitant]
     Active Substance: BUSPIRONE HYDROCHLORIDE
     Indication: SOCIAL ANXIETY DISORDER
     Dosage: 15 MG, 3X/DAY
     Dates: start: 20180314

REACTIONS (1)
  - Drug ineffective [Unknown]
